FAERS Safety Report 18283829 (Version 3)
Quarter: 2020Q4

REPORT INFORMATION
  Report Type: Report from Study
  Country: US (occurrence: US)
  Receive Date: 20200918
  Receipt Date: 20201015
  Transmission Date: 20210113
  Serious: Yes (Hospitalization, Other)
  Sender: FDA-Public Use
  Company Number: US-JNJFOC-20200916218

PATIENT
  Age: 47 Year
  Sex: Male
  Weight: 60.38 kg

DRUGS (2)
  1. VELETRI [Suspect]
     Active Substance: EPOPROSTENOL
     Indication: PULMONARY HYPERTENSION
     Route: 042
  2. SILDENAFIL CITRATE. [Concomitant]
     Active Substance: SILDENAFIL CITRATE

REACTIONS (3)
  - Oedema [Unknown]
  - Shock haemorrhagic [Unknown]
  - Ascites [Unknown]
